FAERS Safety Report 24235164 (Version 1)
Quarter: 2024Q3

REPORT INFORMATION
  Report Type: Spontaneous
  Country: CA (occurrence: CA)
  Receive Date: 20240821
  Receipt Date: 20240821
  Transmission Date: 20241016
  Serious: Yes (Hospitalization, Disabling, Other)
  Sender: COVIS PHARMA
  Company Number: CA-AstraZeneca-2024A186861

PATIENT
  Age: 80 Year
  Sex: Male
  Weight: 89 kg

DRUGS (24)
  1. ACLIDINIUM BROMIDE\FORMOTEROL FUMARATE [Suspect]
     Active Substance: ACLIDINIUM BROMIDE\FORMOTEROL FUMARATE
  2. ALVESCO [Suspect]
     Active Substance: CICLESONIDE
     Indication: Asthma
     Route: 065
  3. BUDESONIDE [Suspect]
     Active Substance: BUDESONIDE
     Indication: Asthma
     Route: 055
  4. BUDESONIDE\FORMOTEROL [Suspect]
     Active Substance: BUDESONIDE\FORMOTEROL
     Indication: Asthma
     Route: 055
  5. RAMIPRIL [Suspect]
     Active Substance: RAMIPRIL
     Route: 048
  6. ACETYLCYSTEINE [Suspect]
     Active Substance: ACETYLCYSTEINE
  7. ASPIRIN [Suspect]
     Active Substance: ASPIRIN
  8. AMLODIPINE BESYLATE [Suspect]
     Active Substance: AMLODIPINE BESYLATE
  9. AZITHROMYCIN [Suspect]
     Active Substance: AZITHROMYCIN
  10. DOXYCYCLINE [Suspect]
     Active Substance: DOXYCYCLINE\DOXYCYCLINE HYCLATE
  11. LEVOFLOXACIN [Suspect]
     Active Substance: LEVOFLOXACIN
     Indication: Prophylaxis
  12. MELATONIN [Suspect]
     Active Substance: MELATONIN
  13. NAPROXEN [Suspect]
     Active Substance: NAPROXEN
  14. PREDNISONE [Suspect]
     Active Substance: PREDNISONE
     Indication: Asthma
  15. PREVNAR 13 [Suspect]
     Active Substance: STREPTOCOCCUS PNEUMONIAE TYPE 1 CAPSULAR POLYSACCHARIDE DIPHTHERIA CRM197 PROTEIN CONJUGATE ANTIGEN\
     Indication: Prophylaxis
  16. ROSUVASTATIN [Suspect]
     Active Substance: ROSUVASTATIN\ROSUVASTATIN CALCIUM
  17. ALBUTEROL SULFATE [Suspect]
     Active Substance: ALBUTEROL SULFATE
     Indication: Asthma prophylaxis
  18. SPIRIVA [Suspect]
     Active Substance: TIOTROPIUM BROMIDE MONOHYDRATE
  19. TAMSULOSIN HYDROCHLORIDE [Suspect]
     Active Substance: TAMSULOSIN HYDROCHLORIDE
  20. AMLODIPINE BESYLATE [Suspect]
     Active Substance: AMLODIPINE BESYLATE
  21. PANTOPRAZOLE SODIUM [Suspect]
     Active Substance: PANTOPRAZOLE SODIUM
     Indication: Prophylaxis
  22. PREGABALIN [Suspect]
     Active Substance: PREGABALIN
  23. TIOTROPIUM [Suspect]
     Active Substance: TIOTROPIUM
     Indication: Asthma
  24. MESALAMINE [Suspect]
     Active Substance: MESALAMINE

REACTIONS (8)
  - Benign prostatic hyperplasia [Unknown]
  - Breath sounds abnormal [Unknown]
  - Bronchiectasis [Unknown]
  - Chronic obstructive pulmonary disease [Unknown]
  - Congenital hiatus hernia [Unknown]
  - Full blood count abnormal [Unknown]
  - Malignant melanoma in situ [Unknown]
  - Transient ischaemic attack [Unknown]
